FAERS Safety Report 11104026 (Version 1)
Quarter: 2015Q2

REPORT INFORMATION
  Report Type: Report from Study
  Country: ES (occurrence: ES)
  Receive Date: 20150511
  Receipt Date: 20150511
  Transmission Date: 20150821
  Serious: Yes (Hospitalization, Other)
  Sender: FDA-Public Use
  Company Number: ES-GSKJP-DK201208233003

PATIENT
  Age: 76 Year
  Sex: Male
  Weight: 72 kg

DRUGS (26)
  1. ATROVENT [Concomitant]
     Active Substance: IPRATROPIUM BROMIDE
     Indication: CHRONIC OBSTRUCTIVE PULMONARY DISEASE
     Dosage: 6 PUFF, ONE
     Route: 055
     Dates: start: 20120212, end: 20120213
  2. KETAMINA [Concomitant]
     Indication: ANAESTHETIC PREMEDICATION
     Dosage: 75 MG, ONE
     Route: 042
     Dates: start: 20120212, end: 20120212
  3. AMIODARONA [Concomitant]
     Active Substance: AMIODARONE
     Indication: TACHYARRHYTHMIA
     Dosage: 300 MG, ONE
     Route: 042
     Dates: start: 20120212, end: 20120212
  4. SALBUTAMOL [Concomitant]
     Active Substance: ALBUTEROL
     Indication: CHRONIC OBSTRUCTIVE PULMONARY DISEASE
     Dosage: 6 PUFF, ONE
     Route: 055
     Dates: start: 20120212, end: 20120212
  5. VOLUVEN [Concomitant]
     Active Substance: HYDROXYETHYL STARCH 130/0.4
     Indication: HYPOVOLAEMIA
     Dosage: 500 CC, ONE
     Route: 042
     Dates: start: 20120212, end: 20120212
  6. VOLUVEN [Concomitant]
     Active Substance: HYDROXYETHYL STARCH 130/0.4
     Indication: HYPOVOLAEMIA
  7. SALBUTAMOL [Concomitant]
     Active Substance: ALBUTEROL
     Indication: BRONCHOSPASM
     Dosage: 5 MG, Q6H
     Route: 055
     Dates: start: 20120212, end: 20120220
  8. INSULIN [Concomitant]
     Active Substance: INSULIN NOS
     Indication: DIABETES MELLITUS
  9. ADRENALINA [Concomitant]
     Indication: ARRHYTHMIA
     Dosage: 150 MG, OD
     Route: 042
     Dates: start: 20120212, end: 20120212
  10. FLUTICASONE FUROATE + VILANTEROL TRIFENATATE [Suspect]
     Active Substance: FLUTICASONE FUROATE\VILANTEROL TRIFENATATE
     Indication: CHRONIC OBSTRUCTIVE PULMONARY DISEASE
     Dosage: 100/25 UG QD
     Route: 055
     Dates: start: 20111124, end: 20120212
  11. ATROVENT [Concomitant]
     Active Substance: IPRATROPIUM BROMIDE
     Indication: BRONCHOSPASM
  12. ANECTINE [Concomitant]
     Active Substance: SUCCINYLCHOLINE CHLORIDE
     Indication: ANAESTHETIC PREMEDICATION
     Dosage: 1 AMP, ONE
     Route: 042
     Dates: start: 20120212, end: 20120212
  13. ANECTINE [Concomitant]
     Active Substance: SUCCINYLCHOLINE CHLORIDE
     Indication: ANAESTHETIC PREMEDICATION
  14. FLUTICASONE FUROATE + VILANTEROL TRIFENATATE [Suspect]
     Active Substance: FLUTICASONE FUROATE\VILANTEROL TRIFENATATE
     Dosage: 100/25 UG QD
     Route: 055
     Dates: start: 20120216, end: 20120308
  15. FENTANEST [Concomitant]
     Active Substance: FENTANYL CITRATE
     Indication: SEDATION
  16. FUROSEMIDA [Concomitant]
     Active Substance: FUROSEMIDE
     Indication: DIURETIC THERAPY
     Dosage: 20 MG, Q8H
     Route: 042
     Dates: start: 20120212, end: 20120212
  17. ATROVENT [Concomitant]
     Active Substance: IPRATROPIUM BROMIDE
     Indication: BRONCHOSPASM
     Dosage: 2 INH, BID
     Route: 055
     Dates: start: 2011, end: 20120412
  18. LOBIVON [Concomitant]
     Active Substance: NEBIVOLOL HYDROCHLORIDE
     Indication: HYPERTENSION
     Dosage: 2.5 MG, OD
     Route: 048
     Dates: start: 2008, end: 20120412
  19. PANTOPRAZOLE SODIUM. [Concomitant]
     Active Substance: PANTOPRAZOLE SODIUM
     Indication: PROPHYLAXIS AGAINST GASTROINTESTINAL ULCER
     Dosage: 40 MG, OD
     Route: 042
     Dates: start: 20120212, end: 20120215
  20. PANTOPRAZOLE SODIUM. [Concomitant]
     Active Substance: PANTOPRAZOLE SODIUM
     Indication: PROPHYLAXIS AGAINST GASTROINTESTINAL ULCER
  21. INSULIN [Concomitant]
     Active Substance: INSULIN NOS
     Indication: DIABETES MELLITUS
     Dosage: 4 U, Q6H, RAPID
     Route: 058
     Dates: start: 20120212, end: 20120216
  22. ENOXAPARINA SODICA [Concomitant]
     Indication: THROMBOSIS PROPHYLAXIS
     Dosage: 40 MG, OD
     Route: 058
     Dates: start: 20120212, end: 20120221
  23. SALBUTAMOL [Concomitant]
     Active Substance: ALBUTEROL
     Indication: BRONCHOSPASM
  24. FENTANEST [Concomitant]
     Active Substance: FENTANYL CITRATE
     Indication: ANALGESIC THERAPY
     Dosage: 150 MCG, OD
     Route: 042
     Dates: start: 20120212, end: 20120212
  25. FENTANEST [Concomitant]
     Active Substance: FENTANYL CITRATE
     Indication: SEDATION
  26. OSELTAMIVIR [Concomitant]
     Active Substance: OSELTAMIVIR
     Indication: PNEUMONIA
     Dosage: 75 MG, Q12H
     Dates: start: 20120212, end: 20120213

REACTIONS (2)
  - Pneumonia [Recovered/Resolved]
  - Atrial fibrillation [Recovered/Resolved]

NARRATIVE: CASE EVENT DATE: 20120212
